FAERS Safety Report 4557175-3 (Version None)
Quarter: 2005Q1

REPORT INFORMATION
  Report Type: 
  Country: None (occurrence: None)
  Receive Date: 20050114
  Receipt Date: 20050106
  Transmission Date: 20050727
  Serious: Yes (Hospitalization)
  Sender: FDA-Public Use
  Company Number: NUBN20050001

PATIENT
  Age: 53 Year
  Sex: Female

DRUGS (9)
  1. NUBAIN [Suspect]
     Indication: ABDOMINAL PAIN
     Dosage: 20 MG ONCE IM
     Route: 030
     Dates: start: 20050103, end: 20050103
  2. VALIUM [Suspect]
     Indication: ABDOMINAL PAIN
     Dosage: 7.5 MG ONCE IM
     Route: 030
     Dates: start: 20050103, end: 20050103
  3. PHENERGAN [Suspect]
     Indication: ABDOMINAL PAIN
     Dosage: 25 MG ONCE IM
     Route: 030
     Dates: start: 20050103, end: 20050103
  4. FENTANYL [Concomitant]
  5. VICODIN ES [Concomitant]
  6. CELEXA [Concomitant]
  7. SYNTHROID [Concomitant]
  8. LOTREL [Concomitant]
  9. PREMARIN [Concomitant]

REACTIONS (7)
  - ABDOMINAL PAIN [None]
  - BLADDER PAIN [None]
  - CALCULUS URINARY [None]
  - DRUG INEFFECTIVE [None]
  - EYE DISORDER [None]
  - MENTAL DISORDER [None]
  - MUSCLE CONTRACTURE [None]
